APPROVED DRUG PRODUCT: MOXIFLOXACIN HYDROCHLORIDE
Active Ingredient: MOXIFLOXACIN HYDROCHLORIDE
Strength: EQ 0.5% BASE
Dosage Form/Route: SOLUTION/DROPS;OPHTHALMIC
Application: A219475 | Product #001 | TE Code: AT1
Applicant: FDC LTD
Approved: Aug 4, 2025 | RLD: No | RS: No | Type: RX